FAERS Safety Report 6819537-0 (Version None)
Quarter: 2010Q3

REPORT INFORMATION
  Report Type: 
  Country: None (occurrence: None)
  Receive Date: 20100707
  Receipt Date: 20100625
  Transmission Date: 20110219
  Serious: Yes (Death, Life-Threatening, Hospitalization, Other)
  Sender: FDA-Public Use
  Company Number: BR-SANOFI-AVENTIS-2009SA010876

PATIENT
  Age: 53 Year
  Sex: Male
  Weight: 80.8 kg

DRUGS (9)
  1. ENOXAPARIN SODIUM [Suspect]
     Indication: THROMBOSIS PROPHYLAXIS
     Route: 058
     Dates: start: 20091213, end: 20091215
  2. ENALAPRIL MALEATE [Concomitant]
     Route: 065
     Dates: start: 20040101
  3. ATENOLOL [Concomitant]
     Route: 065
     Dates: start: 20040101
  4. PROPRANOLOL [Concomitant]
     Route: 065
     Dates: start: 20091202, end: 20091213
  5. OMEPRAZOLE [Concomitant]
     Route: 065
     Dates: start: 20091128, end: 20091213
  6. VITAMIN K TAB [Concomitant]
     Route: 065
     Dates: start: 20091210, end: 20091220
  7. VITAMIN K TAB [Concomitant]
     Route: 030
     Dates: start: 20091210, end: 20091219
  8. DIPIRONA [Concomitant]
     Route: 065
     Dates: start: 20091208, end: 20091219
  9. CIPROFLOXACIN [Concomitant]
     Route: 065
     Dates: start: 20091208, end: 20091220

REACTIONS (5)
  - DEPRESSED LEVEL OF CONSCIOUSNESS [None]
  - HEPATORENAL SYNDROME [None]
  - INTRA-ABDOMINAL HAEMORRHAGE [None]
  - RENAL FAILURE [None]
  - RESPIRATORY FAILURE [None]
